FAERS Safety Report 8368258-4 (Version None)
Quarter: 2012Q2

REPORT INFORMATION
  Report Type: 
  Country: None (occurrence: None)
  Receive Date: 20120517
  Receipt Date: 20120511
  Transmission Date: 20120825
  Serious: Yes (Other)
  Sender: FDA-Public Use
  Company Number: US-RB-037783-12

PATIENT
  Age: 52 Year
  Sex: Female

DRUGS (5)
  1. LEXAPRO [Concomitant]
     Indication: DEPRESSION
     Dosage: DOSING DETAILS UNKNOWN
     Route: 065
  2. SUBOXONE [Suspect]
     Indication: DRUG DEPENDENCE
     Route: 060
     Dates: start: 20110101
  3. SUBOXONE [Suspect]
     Indication: DRUG DEPENDENCE
     Dosage: VARIOUS DAILY DOSES
     Route: 060
  4. ZYPREXA [Concomitant]
     Indication: BIPOLAR DISORDER
     Dosage: DOSING DETAILS UNKNOWN
     Route: 065
  5. XANAX [Concomitant]
     Indication: ANXIETY DISORDER
     Route: 065

REACTIONS (3)
  - BREAST CANCER STAGE I [None]
  - UNDERDOSE [None]
  - WRONG TECHNIQUE IN DRUG USAGE PROCESS [None]
